FAERS Safety Report 6209438-3 (Version None)
Quarter: 2009Q2

REPORT INFORMATION
  Report Type: 
  Country: None (occurrence: None)
  Receive Date: 20090601
  Receipt Date: 20090521
  Transmission Date: 20091009
  Serious: Yes (Hospitalization)
  Sender: FDA-Public Use
  Company Number: TR-ROCHE-606720

PATIENT
  Sex: Female
  Weight: 74 kg

DRUGS (4)
  1. METHOXY POLYETHYLENE GLYCOL-EPOETIN BETA [Suspect]
     Dosage: FORM: PFS; LAST DOSE PRIOR TO SAE: 22 DECEMBER 2008
     Route: 058
     Dates: start: 20081222, end: 20090106
  2. VALSARTAN [Concomitant]
     Dates: start: 20070101
  3. METOPROLOL SUCCINATE [Concomitant]
     Dates: start: 20070101
  4. ALLOPURINOL [Concomitant]
     Dates: start: 20070101

REACTIONS (2)
  - PYELONEPHRITIS ACUTE [None]
  - RENAL FAILURE ACUTE [None]
